FAERS Safety Report 12269218 (Version 2)
Quarter: 2016Q2

REPORT INFORMATION
  Report Type: Spontaneous
  Country: JP (occurrence: JP)
  Receive Date: 20160414
  Receipt Date: 20160421
  Transmission Date: 20160815
  Serious: Yes (Hospitalization)
  Sender: FDA-Public Use
  Company Number: JP-TEVA-651192ISR

PATIENT
  Age: 65 Year
  Sex: Male

DRUGS (1)
  1. CISPLATIN. [Suspect]
     Active Substance: CISPLATIN
     Indication: HYPOPHARYNGEAL CANCER RECURRENT
     Route: 065

REACTIONS (5)
  - Extradural abscess [Recovered/Resolved]
  - Spondylitis [Recovered/Resolved]
  - Perforation [Recovered/Resolved]
  - Pharyngeal abscess [Recovered/Resolved]
  - Stenosis [Recovered/Resolved]
